FAERS Safety Report 13916462 (Version 4)
Quarter: 2017Q4

REPORT INFORMATION
  Report Type: Report from Study
  Country: JP (occurrence: JP)
  Receive Date: 20170829
  Receipt Date: 20171219
  Transmission Date: 20180320
  Serious: Yes (Hospitalization)
  Sender: FDA-Public Use
  Company Number: JP-AMGEN-JPNSP2017130353

PATIENT
  Age: 74 Year
  Sex: Female

DRUGS (2)
  1. CARFILZOMIB [Suspect]
     Active Substance: CARFILZOMIB
     Dosage: 56 MG/M2, UNK
     Route: 041
     Dates: start: 20170809
  2. CARFILZOMIB [Suspect]
     Active Substance: CARFILZOMIB
     Indication: PLASMA CELL MYELOMA
     Dosage: 56 MG/M2, UNK
     Route: 041
     Dates: start: 20170607

REACTIONS (5)
  - Oropharyngeal pain [Recovered/Resolved]
  - Cardiomegaly [Recovered/Resolved]
  - Pyrexia [Recovered/Resolved]
  - Haemoglobin decreased [Recovered/Resolved]
  - Brain natriuretic peptide increased [Recovered/Resolved]

NARRATIVE: CASE EVENT DATE: 20170704
